FAERS Safety Report 4497784-3 (Version None)
Quarter: 2004Q4

REPORT INFORMATION
  Report Type: 
  Country: None (occurrence: None)
  Receive Date: 20041104
  Receipt Date: 20041022
  Transmission Date: 20050328
  Serious: Yes (Other)
  Sender: FDA-Public Use
  Company Number: 2004US001214

PATIENT
  Age: 49 Year
  Sex: Male

DRUGS (11)
  1. PROGRAF [Suspect]
     Indication: RENAL TRANSPLANT
     Dates: start: 20031210
  2. ERYTHOPOIETIN (ERYTHOPOIETIN) [Concomitant]
  3. EPOETIN (EPOETIN ALFA) [Concomitant]
  4. MYCOPHENOLATE MOFETIL (MYCOPHENOLATE MOFETIL) [Concomitant]
  5. PREDNISONE [Concomitant]
  6. BACTRIM [Concomitant]
  7. GANCICLOVIR SODIUM [Concomitant]
  8. FOLIC ACID [Concomitant]
  9. ROCALTROL [Concomitant]
  10. CO-TRIMOXAZOLE (CO-TRIMOXAZOLE) [Concomitant]
  11. DACLIZUMAB (DACLIZUMAB) [Concomitant]

REACTIONS (1)
  - APLASIA PURE RED CELL [None]
